FAERS Safety Report 15111389 (Version 1)
Quarter: 2018Q3

REPORT INFORMATION
  Report Type: Spontaneous
  Country: BR (occurrence: BR)
  Receive Date: 20180705
  Receipt Date: 20180705
  Transmission Date: 20181010
  Serious: Yes (Hospitalization)
  Sender: FDA-Public Use
  Company Number: BR-NAPPMUNDI-GBR-2018-0057143

PATIENT
  Age: 63 Year
  Sex: Female

DRUGS (1)
  1. OXYCONTIN [Suspect]
     Active Substance: OXYCODONE HYDROCHLORIDE
     Indication: PAIN
     Dosage: STRENGTH 10 MG
     Route: 048

REACTIONS (4)
  - Vomiting [Recovered/Resolved]
  - Eating disorder [Recovered/Resolved]
  - Pain [Unknown]
  - Dehydration [Recovered/Resolved]

NARRATIVE: CASE EVENT DATE: 20180621
